FAERS Safety Report 4733042-7 (Version None)
Quarter: 2005Q3

REPORT INFORMATION
  Report Type: 
  Country: None (occurrence: None)
  Receive Date: 20050801
  Receipt Date: 20050721
  Transmission Date: 20060218
  Serious: Yes (Disabling)
  Sender: FDA-Public Use
  Company Number: RS003294-F

PATIENT
  Age: 56 Year
  Sex: Female

DRUGS (11)
  1. RABEPRAZOLE SODIUM [Suspect]
     Indication: HELICOBACTER GASTRITIS
     Dosage: 40 MG, 2 IN1 D, ORAL
     Route: 048
     Dates: start: 20020304, end: 20020331
  2. OMEPRAZOLE [Suspect]
     Indication: HELICOBACTER GASTRITIS
     Dosage: ORAL
     Route: 048
     Dates: start: 20020101, end: 20020201
  3. NEXIUM [Suspect]
     Indication: HELICOBACTER GASTRITIS
     Dosage: SEE IMAGE
     Route: 048
     Dates: start: 20020601, end: 20020601
  4. NEXIUM [Suspect]
     Indication: HELICOBACTER GASTRITIS
     Dosage: SEE IMAGE
     Route: 048
     Dates: start: 20020101, end: 20020801
  5. . [Concomitant]
  6. CLAMOXYL (AMOXICILIN TRIHYDRATE) [Concomitant]
  7. FLAGYL [Concomitant]
  8. CLARITHROMYCIN [Concomitant]
  9. OFLOXACIN [Concomitant]
  10. RANITIDINE HYDROCHLORIDE [Concomitant]
  11. ULTRA-LEVURE (SACCHAROMYCES BOULARDII) [Concomitant]

REACTIONS (3)
  - DRUG INEFFECTIVE [None]
  - ERYTHEMA MULTIFORME [None]
  - TOXIC EPIDERMAL NECROLYSIS [None]
